FAERS Safety Report 21399587 (Version 1)
Quarter: 2022Q4

REPORT INFORMATION
  Report Type: Spontaneous
  Country: DE (occurrence: DE)
  Receive Date: 20221001
  Receipt Date: 20221001
  Transmission Date: 20230112
  Serious: Yes (Hospitalization)
  Sender: FDA-Public Use
  Company Number: DE-ADRED-07794-01

PATIENT
  Age: 84 Year
  Sex: Female
  Weight: 53 kg

DRUGS (14)
  1. TORSEMIDE [Suspect]
     Active Substance: TORSEMIDE
     Indication: Product used for unknown indication
     Dosage: 4 DOSAGE FORMS DAILY; 20 MG, 2-2-0-0, UNIT DOSE : 2 DF , FREQUENCY : BD
  2. AMIODARONE [Suspect]
     Active Substance: AMIODARONE
     Indication: Product used for unknown indication
     Dosage: 1 DOSAGE FORMS DAILY; 200 MG, 1-0-0-0, UNIT DOSE : 1 DF , FREQUENCY : OD
  3. RAMIPRIL [Suspect]
     Active Substance: RAMIPRIL
     Indication: Product used for unknown indication
     Dosage: 2 DOSAGE FORMS DAILY; 2.5 MG, 1-0-1-0, UNIT DOSE : 1 DF , FREQUENCY : BD
  4. XIPAMIDE [Suspect]
     Active Substance: XIPAMIDE
     Indication: Product used for unknown indication
     Dosage: 1 DOSAGE FORMS DAILY; 20 MG, 1-0-0-0, UNIT DOSE : 1 DF , FREQUENCY : OD
  5. METOPROLOL [Concomitant]
     Active Substance: METOPROLOL
     Indication: Product used for unknown indication
     Dosage: 2 DOSAGE FORMS DAILY; 47.5 MG, 1-0-1-0, UNIT DOSE : 1 DF , FREQUENCY : BD
  6. PANTOPRAZOLE [Concomitant]
     Active Substance: PANTOPRAZOLE
     Indication: Product used for unknown indication
     Dosage: 1 DOSAGE FORMS DAILY; 20 MG, 1-0-0-0, UNIT DOSE : 1 DF , FREQUENCY : OD
  7. ESCITALOPRAM [Concomitant]
     Active Substance: ESCITALOPRAM OXALATE
     Indication: Product used for unknown indication
     Dosage: 1 DOSAGE FORMS DAILY; 10 MG, 1-0-0-0, UNIT DOSE : 1 DF , FREQUENCY : OD
  8. BROMAZEPAM [Concomitant]
     Active Substance: BROMAZEPAM
     Indication: Product used for unknown indication
     Dosage: 1 DOSAGE FORMS DAILY; 3 MG, 0-0-0-1, UNIT DOSE : 1 DF , FREQUENCY : OD
  9. FOLIC ACID [Concomitant]
     Active Substance: FOLIC ACID
     Indication: Product used for unknown indication
     Dosage: 1 DOSAGE FORMS DAILY; 5 MG, 1-0-0-0, UNIT DOSE : 1 DF , FREQUENCY : OD
  10. Eisen(II)-sulfat [Concomitant]
     Indication: Product used for unknown indication
     Dosage: 3 DOSAGE FORMS DAILY; 50 MG, 1-1-1-0, UNIT DOSE : 1 DF , FREQUENCY : 3 TIMES A DAY
  11. PHENPROCOUMON [Concomitant]
     Active Substance: PHENPROCOUMON
     Indication: Product used for unknown indication
     Dosage: 3 MG, ACCORDING TO INR, TABLETS
  12. Calcium Carbonate/Colecalciferol (Vitamin D) [Concomitant]
     Indication: Product used for unknown indication
     Dosage: 1 DOSAGE FORMS DAILY; 1500|0.01 MG, 1-0-0-0, UNIT DOSE : 1 DF , FREQUENCY : OD
  13. AMLODIPINE [Concomitant]
     Active Substance: AMLODIPINE BESYLATE
     Indication: Product used for unknown indication
     Dosage: 2 DOSAGE FORMS DAILY; 5 MG, 1-0-1-0, UNIT DOSE : 1 DF , FREQUENCY : BD
  14. METAMIZOLE [Concomitant]
     Active Substance: METAMIZOLE
     Indication: Product used for unknown indication
     Dosage: 3 DOSAGE FORMS DAILY; 500 MG, 1-1-1-0, UNIT DOSE : 1 DF , FREQUENCY : 3 TIMES A DAY

REACTIONS (6)
  - Fatigue [Unknown]
  - Nephrogenic anaemia [Unknown]
  - Oliguria [Unknown]
  - Hyperkalaemia [Unknown]
  - Acute kidney injury [Unknown]
  - Renal impairment [Unknown]
